FAERS Safety Report 5029420-1 (Version None)
Quarter: 2006Q2

REPORT INFORMATION
  Report Type: 
  Country: None (occurrence: None)
  Receive Date: 20060613
  Receipt Date: 20060531
  Transmission Date: 20061013
  Serious: Yes (Hospitalization, Other)
  Sender: FDA-Public Use
  Company Number: 2006007886

PATIENT
  Age: 31 Year
  Sex: Male
  Weight: 105 kg

DRUGS (7)
  1. SOMAVERT [Suspect]
     Indication: ACROMEGALY
     Dosage: 20 MG (20 MG, DAILY), SUBCUTANEOUS
     Route: 058
     Dates: start: 20050601
  2. NEURONTIN [Concomitant]
  3. TEGRETOL 9CARBAMAZEPINE) [Concomitant]
  4. NEULEPTIL (PERICIAZINE) [Concomitant]
  5. NOZINAN (LEVOMEPROMAZINE) [Concomitant]
  6. LEVOTHYROXINE SODIUM [Concomitant]
  7. ANDORTARDYL (TESTOSTERONE ENANTATE) [Concomitant]

REACTIONS (4)
  - BILE DUCT OBSTRUCTION [None]
  - CHOLECYSTITIS CHRONIC [None]
  - CHOLELITHIASIS [None]
  - HEPATIC FIBROSIS [None]
